FAERS Safety Report 15332005 (Version 2)
Quarter: 2019Q4

REPORT INFORMATION
  Report Type: Report from Study
  Country: JP (occurrence: JP)
  Receive Date: 20180829
  Receipt Date: 20191211
  Transmission Date: 20200122
  Serious: Yes (Other)
  Sender: FDA-Public Use
  Company Number: PHJP2018JP015393

PATIENT
  Age: 51 Year
  Sex: Male
  Weight: 68.4 kg

DRUGS (26)
  1. CICLOSPORIN [Concomitant]
     Active Substance: CYCLOSPORINE
     Indication: PSORIASIS
     Dosage: 200 MG, UNK
     Route: 048
     Dates: end: 20160731
  2. DOVOBET [Concomitant]
     Active Substance: BETAMETHASONE\CALCIPOTRIENE
     Dosage: Q.S., QD
     Route: 061
     Dates: start: 20161025, end: 20161207
  3. COSENTYX [Suspect]
     Active Substance: SECUKINUMAB
     Indication: PSORIASIS
     Dosage: 300 MG, UNK
     Route: 058
     Dates: start: 20160801
  4. COSENTYX [Suspect]
     Active Substance: SECUKINUMAB
     Dosage: 300 MG
     Route: 058
     Dates: start: 20160808
  5. COSENTYX [Suspect]
     Active Substance: SECUKINUMAB
     Dosage: 300 MG
     Route: 058
     Dates: start: 20170118
  6. DOVOBET [Concomitant]
     Active Substance: BETAMETHASONE\CALCIPOTRIENE
     Indication: PSORIASIS
     Dosage: Q.S., QD
     Route: 061
     Dates: end: 20160828
  7. DOVOBET [Concomitant]
     Active Substance: BETAMETHASONE\CALCIPOTRIENE
     Dosage: Q.S., QD
     Route: 061
     Dates: start: 20170914
  8. COSENTYX [Suspect]
     Active Substance: SECUKINUMAB
     Dosage: 300 MG
     Route: 058
     Dates: start: 20160816
  9. COSENTYX [Suspect]
     Active Substance: SECUKINUMAB
     Dosage: 300 MG
     Route: 058
     Dates: start: 20160822
  10. COSENTYX [Suspect]
     Active Substance: SECUKINUMAB
     Dosage: 300 MG
     Route: 058
     Dates: start: 20161207
  11. COSENTYX [Suspect]
     Active Substance: SECUKINUMAB
     Dosage: 300 MG, UNK
     Route: 058
     Dates: start: 20170315
  12. PROTOPIC [Concomitant]
     Active Substance: TACROLIMUS
     Indication: PSORIASIS
     Dosage: Q.S., QD
     Route: 061
     Dates: start: 20170914
  13. TACALCITOL MONOHYDRATE [Concomitant]
     Indication: PSORIASIS
     Dosage: Q.S., QD
     Route: 065
     Dates: start: 20160927, end: 20170117
  14. URINORM [Concomitant]
     Active Substance: BENZBROMARONE
     Indication: HYPERURICAEMIA
     Dosage: 50 MG, UNK
     Route: 048
  15. ALLEGRA [Concomitant]
     Active Substance: FEXOFENADINE HYDROCHLORIDE
     Indication: PROPHYLAXIS
     Dosage: 120 MG, UNK
     Route: 048
     Dates: start: 20161207, end: 20170117
  16. COSENTYX [Suspect]
     Active Substance: SECUKINUMAB
     Dosage: 300 MG
     Route: 058
     Dates: start: 20161025
  17. TALION [Concomitant]
     Indication: PSORIASIS
     Dosage: 20 MG, PRN
     Route: 048
     Dates: start: 20170220, end: 20170913
  18. FULMETA [Concomitant]
     Active Substance: MOMETASONE
     Indication: ADVERSE EVENT
     Dosage: Q.S., BID
     Route: 065
  19. COSENTYX [Suspect]
     Active Substance: SECUKINUMAB
     Dosage: 300 MG
     Route: 058
     Dates: start: 20160829
  20. COSENTYX [Suspect]
     Active Substance: SECUKINUMAB
     Dosage: 300 MG
     Route: 058
     Dates: start: 20160927
  21. TACROLIMUS MONOHYDRATE [Concomitant]
     Active Substance: TACROLIMUS
     Indication: PSORIASIS
     Dosage: Q.S., QD
     Route: 065
     Dates: end: 20161207
  22. UREPEARL [Concomitant]
     Active Substance: UREA
     Indication: PSORIASIS
     Dosage: UNK, PRN
     Route: 061
     Dates: start: 20170118
  23. COSENTYX [Suspect]
     Active Substance: SECUKINUMAB
     Dosage: 300 MG, UNK
     Route: 058
     Dates: start: 20170605
  24. BONALFA [Concomitant]
     Active Substance: TACALCITOL
     Indication: PSORIASIS
     Dosage: Q.S., QD
     Route: 061
     Dates: start: 20170914
  25. COSENTYX [Suspect]
     Active Substance: SECUKINUMAB
     Dosage: 300 MG, UNK
     Route: 058
     Dates: start: 20170914
  26. PROPETO [Concomitant]
     Active Substance: PETROLATUM
     Indication: PSORIASIS
     Dosage: UNK, PRN
     Route: 061
     Dates: start: 20170220

REACTIONS (4)
  - Swelling face [Unknown]
  - Dyshidrotic eczema [Recovered/Resolved]
  - Pyrexia [Unknown]
  - Erysipelas [Recovered/Resolved]

NARRATIVE: CASE EVENT DATE: 20160808
